FAERS Safety Report 17524268 (Version 2)
Quarter: 2020Q2

REPORT INFORMATION
  Report Type: Spontaneous
  Country: JP (occurrence: JP)
  Receive Date: 20200310
  Receipt Date: 20200406
  Transmission Date: 20200713
  Serious: Yes (Hospitalization)
  Sender: FDA-Public Use
  Company Number: JP-UCBSA-2020009571

PATIENT
  Age: 65 Year
  Sex: Female

DRUGS (2)
  1. NEUPRO [Suspect]
     Active Substance: ROTIGOTINE
     Indication: PARKINSON^S DISEASE
     Dosage: 4.5 MG/2 MG DAILY
  2. ENSURE [NUTRIENTS NOS] [Concomitant]
     Indication: NAUSEA

REACTIONS (4)
  - Vomiting [Unknown]
  - Intestinal obstruction [Unknown]
  - Hypophagia [Unknown]
  - Nausea [Unknown]
